FAERS Safety Report 12934063 (Version 2)
Quarter: 2016Q4

REPORT INFORMATION
  Report Type: Report from Study
  Country: CA (occurrence: CA)
  Receive Date: 20161111
  Receipt Date: 20161222
  Transmission Date: 20170207
  Serious: Yes (Hospitalization)
  Sender: FDA-Public Use
  Company Number: CA-PFIZER INC-2016512225

PATIENT
  Age: 71 Year
  Sex: Female
  Weight: 89.4 kg

DRUGS (15)
  1. LIPITOR [Concomitant]
     Active Substance: ATORVASTATIN CALCIUM
     Indication: ARTERIOSCLEROSIS
     Dosage: UNK
     Dates: start: 2005
  2. BLINDED PF-04950615 [Suspect]
     Active Substance: BOCOCIZUMAB
     Indication: CARDIOVASCULAR DISORDER
     Dosage: EVERY 2 WEEKS
     Route: 058
     Dates: start: 20150605, end: 20150918
  3. BLINDED PF-04950615 [Suspect]
     Active Substance: BOCOCIZUMAB
     Indication: CARDIOVASCULAR DISORDER
     Dosage: EVERY 2 WEEKS
     Route: 058
     Dates: start: 20150605, end: 20150918
  4. BLINDED PLACEBO [Suspect]
     Active Substance: INVESTIGATIONAL PRODUCT
     Indication: CARDIOVASCULAR DISORDER
     Dosage: EVERY 2 WEEKS
     Route: 058
     Dates: start: 20150605, end: 20150918
  5. HUMALOG [Concomitant]
     Active Substance: INSULIN LISPRO
     Indication: DIABETES MELLITUS
     Dosage: UNK
     Dates: start: 2012
  6. LANTUS [Concomitant]
     Active Substance: INSULIN GLARGINE
     Indication: DIABETES MELLITUS
     Dosage: UNK
     Dates: start: 2013
  7. DEXILANT [Concomitant]
     Active Substance: DEXLANSOPRAZOLE
     Indication: DYSPEPSIA
     Dosage: UNK
     Dates: start: 2014
  8. LOSARTAN. [Concomitant]
     Active Substance: LOSARTAN
     Indication: HYPERTENSION
     Dosage: UNK
     Dates: start: 2013
  9. METFORMIN [Concomitant]
     Active Substance: METFORMIN HYDROCHLORIDE
     Indication: TYPE 2 DIABETES MELLITUS
     Dosage: UNK
     Dates: start: 1989
  10. BLINDED BOCOCIZUMAB [Suspect]
     Active Substance: BOCOCIZUMAB
     Indication: CARDIOVASCULAR DISORDER
     Dosage: EVERY 2 WEEKS
     Route: 058
     Dates: start: 20150605, end: 20150918
  11. VENLAFAXINE HCL [Suspect]
     Active Substance: VENLAFAXINE HYDROCHLORIDE
     Indication: DEPRESSION
     Dosage: UNK
     Dates: start: 2011
  12. BLINDED BOCOCIZUMAB [Suspect]
     Active Substance: BOCOCIZUMAB
     Indication: CARDIOVASCULAR DISORDER
     Dosage: EVERY 2 WEEKS
     Route: 058
     Dates: start: 20150605, end: 20150918
  13. BROMAZEPAM [Suspect]
     Active Substance: BROMAZEPAM
     Indication: DEPRESSION
     Dosage: UNK
     Dates: start: 2008
  14. BLINDED PLACEBO [Suspect]
     Active Substance: INVESTIGATIONAL PRODUCT
     Indication: CARDIOVASCULAR DISORDER
     Dosage: EVERY 2 WEEKS
     Route: 058
     Dates: start: 20150605, end: 20150918
  15. QUETIAPINE. [Suspect]
     Active Substance: QUETIAPINE
     Indication: DEPRESSION
     Dosage: UNK
     Dates: start: 2011

REACTIONS (2)
  - Patella fracture [Recovered/Resolved]
  - Toxicity to various agents [Recovered/Resolved]

NARRATIVE: CASE EVENT DATE: 201603
